FAERS Safety Report 16794229 (Version 1)
Quarter: 2019Q3

REPORT INFORMATION
  Report Type: Spontaneous
  Country: US (occurrence: US)
  Receive Date: 20190719
  Receipt Date: 20190719
  Transmission Date: 20191005
  Serious: Yes (Hospitalization)
  Sender: FDA-Public Use
  Company Number: None

PATIENT
  Age: 69 Year
  Sex: Male
  Weight: 115.44 kg

DRUGS (1)
  1. IBUPROFEN. [Suspect]
     Active Substance: IBUPROFEN
     Indication: INFLUENZA
     Route: 048
     Dates: start: 20180323, end: 20190309

REACTIONS (5)
  - Abdominal discomfort [None]
  - Nausea [None]
  - Decreased appetite [None]
  - Retching [None]
  - Gastric haemorrhage [None]

NARRATIVE: CASE EVENT DATE: 20190308
